FAERS Safety Report 5108809-6 (Version None)
Quarter: 2006Q3

REPORT INFORMATION
  Report Type: 
  Country: None (occurrence: None)
  Receive Date: 20060920
  Receipt Date: 20050708
  Transmission Date: 20061208
  Serious: Yes (Other)
  Sender: FDA-Public Use
  Company Number: GB-BAYER-200510424BNE

PATIENT
  Age: 69 Year
  Sex: Male

DRUGS (2)
  1. LEVITRA [Suspect]
     Indication: ERECTILE DYSFUNCTION
     Dosage: UNIT DOSE: 10 MG
     Route: 048
     Dates: start: 20050621, end: 20050703
  2. FLOMAX [Concomitant]

REACTIONS (5)
  - BLINDNESS TRANSIENT [None]
  - FEELING ABNORMAL [None]
  - HEADACHE [None]
  - TUNNEL VISION [None]
  - VISUAL FIELD DEFECT [None]
